FAERS Safety Report 17739736 (Version 2)
Quarter: 2020Q3

REPORT INFORMATION
  Report Type: Other
  Country: GB (occurrence: GB)
  Receive Date: 20200504
  Receipt Date: 20200702
  Transmission Date: 20201102
  Serious: No
  Sender: FDA-Public Use
  Company Number: GB-LUPIN PHARMACEUTICALS INC.-2020-01086

PATIENT
  Age: 67 Year
  Sex: Male
  Weight: 78.01 kg

DRUGS (2)
  1. ALLERGY RELIEF [CHLORPHENAMINE MALEATE] [Concomitant]
     Indication: ILL-DEFINED DISORDER
     Dosage: UNK (BOOTS)
     Route: 065
  2. SIMVASTATIN. [Suspect]
     Active Substance: SIMVASTATIN
     Indication: BLOOD CHOLESTEROL INCREASED
     Dosage: 20 MILLIGRAM, UNK
     Route: 048
     Dates: start: 20200210, end: 20200216

REACTIONS (2)
  - Paraesthesia [Unknown]
  - Insomnia [Recovered/Resolved]

NARRATIVE: CASE EVENT DATE: 20200212
